FAERS Safety Report 5952852-1 (Version None)
Quarter: 2008Q4

REPORT INFORMATION
  Report Type: 
  Country: None (occurrence: None)
  Receive Date: 20081114
  Receipt Date: 20081103
  Transmission Date: 20090506
  Serious: Yes (Hospitalization)
  Sender: FDA-Public Use
  Company Number: AT-JNJFOC-20070205211

PATIENT
  Age: 41 Year
  Sex: Female
  Weight: 96 kg

DRUGS (1)
  1. INFLIXIMAB [Suspect]
     Indication: PSORIASIS
     Route: 042

REACTIONS (1)
  - TONSILLITIS [None]
